FAERS Safety Report 5907555-6 (Version None)
Quarter: 2008Q3

REPORT INFORMATION
  Report Type: 
  Country: None (occurrence: None)
  Receive Date: 20080929
  Receipt Date: 20080915
  Transmission Date: 20090109
  Serious: Yes (Hospitalization)
  Sender: FDA-Public Use
  Company Number: 1-16647401

PATIENT
  Sex: Male

DRUGS (5)
  1. CLOMIPRAMINE HCL [Suspect]
     Indication: DEPRESSION
     Dosage: 75MG DAILY, ORAL
     Route: 048
  2. OLANZAPINE [Suspect]
     Indication: DEPRESSION
     Dosage: 20 MG, DAILY, ORAL
     Route: 048
  3. CANDESARTAN [Concomitant]
  4. INSULIN [Concomitant]
  5. UNSPECIFIED ORAL MEDICATIONS FOR DIABETES MELLITUS [Concomitant]

REACTIONS (18)
  - ABDOMINAL DISTENSION [None]
  - ALANINE AMINOTRANSFERASE INCREASED [None]
  - ASPARTATE AMINOTRANSFERASE INCREASED [None]
  - BLOOD CALCIUM DECREASED [None]
  - BLOOD CREATINE PHOSPHOKINASE INCREASED [None]
  - BLOOD CREATININE INCREASED [None]
  - BLOOD LACTATE DEHYDROGENASE INCREASED [None]
  - BLOOD PRESSURE INCREASED [None]
  - BLOOD SODIUM DECREASED [None]
  - BLOOD UREA INCREASED [None]
  - COMA [None]
  - DRUG INTERACTION [None]
  - FLATULENCE [None]
  - HYPERGLYCAEMIA [None]
  - METABOLIC ACIDOSIS [None]
  - NEUTROPENIA [None]
  - RED BLOOD CELL SEDIMENTATION RATE INCREASED [None]
  - SEROTONIN SYNDROME [None]
